FAERS Safety Report 8915682 (Version 1)
Quarter: 2012Q4

REPORT INFORMATION
  Report Type: 
  Country: JP (occurrence: JP)
  Receive Date: 20121119
  Receipt Date: 20121119
  Transmission Date: 20130627
  Serious: Yes (Life-Threatening, Hospitalization)
  Sender: FDA-Public Use
  Company Number: JP-AMGEN-JPNSP2012059421

PATIENT
  Age: 73 Year
  Sex: Female
  Weight: 38 kg

DRUGS (6)
  1. RANMARK [Suspect]
     Indication: METASTASES TO BONE
     Route: 058
     Dates: start: 20120622, end: 20120622
  2. ZOMETA [Suspect]
     Dosage: Unknown
     Route: 065
     Dates: start: 20120730
  3. CAMPTO [Concomitant]
     Indication: UTERINE CANCER
     Route: 041
     Dates: start: 20120523
  4. DAIKENTYUTO [Concomitant]
     Indication: ADVERSE REACTION
     Route: 048
     Dates: start: 201201
  5. MAGLAX [Concomitant]
     Indication: ADVERSE REACTION
     Route: 048
     Dates: start: 201201
  6. DECADRON [Concomitant]
     Indication: ADVERSE REACTION
     Route: 048
     Dates: start: 20120523, end: 20120523

REACTIONS (2)
  - Electrocardiogram QT prolonged [Recovered/Resolved]
  - Hypocalcaemia [Recovering/Resolving]
